FAERS Safety Report 16311059 (Version 1)
Quarter: 2019Q2

REPORT INFORMATION
  Report Type: Spontaneous
  Country: FR (occurrence: FR)
  Receive Date: 20190514
  Receipt Date: 20190514
  Transmission Date: 20190711
  Serious: Yes (Hospitalization)
  Sender: FDA-Public Use
  Company Number: FR-009507513-1905FRA005475

PATIENT
  Age: 72 Year
  Sex: Male
  Weight: 78 kg

DRUGS (13)
  1. URBANYL [Concomitant]
     Active Substance: CLOBAZAM
  2. LAMICTAL [Concomitant]
     Active Substance: LAMOTRIGINE
  3. AMLOR [Concomitant]
     Active Substance: AMLODIPINE BESYLATE
  4. NEORAL [Concomitant]
     Active Substance: CYCLOSPORINE
     Dosage: UNK
  5. ZERBAXA [Suspect]
     Active Substance: CEFTOLOZANE SULFATE\TAZOBACTAM SODIUM
     Indication: PYELONEPHRITIS
     Dosage: 3 DOSAGE FORM, QD
     Route: 042
     Dates: start: 20190408, end: 20190420
  6. TAHOR [Concomitant]
     Active Substance: ATORVASTATIN CALCIUM
  7. MOVICOL [Concomitant]
     Active Substance: POLYETHYLENE GLYCOL 3350\POTASSIUM CHLORIDE\SODIUM BICARBONATE\SODIUM CHLORIDE
  8. AVLOCARDYL [Concomitant]
     Active Substance: PROPRANOLOL HYDROCHLORIDE
  9. LANSOPRAZOLE. [Concomitant]
     Active Substance: LANSOPRAZOLE
  10. SOLUPRED [Concomitant]
  11. CELLCEPT [Concomitant]
     Active Substance: MYCOPHENOLATE MOFETIL\MYCOPHENOLATE MOFETIL HYDROCHLORIDE
  12. TRIATEC (RAMIPRIL) [Concomitant]
     Active Substance: RAMIPRIL
  13. VIMPAT [Concomitant]
     Active Substance: LACOSAMIDE

REACTIONS (1)
  - Encephalopathy [Recovering/Resolving]

NARRATIVE: CASE EVENT DATE: 20190419
